FAERS Safety Report 13045588 (Version 3)
Quarter: 2017Q3

REPORT INFORMATION
  Report Type: Spontaneous
  Country: JP (occurrence: JP)
  Receive Date: 20161220
  Receipt Date: 20170712
  Transmission Date: 20171127
  Serious: Yes (Other)
  Sender: FDA-Public Use
  Company Number: PHJP2016JP036448

PATIENT

DRUGS (4)
  1. SANDOSTATINA LAR IM INJECTION [Suspect]
     Active Substance: OCTREOTIDE ACETATE
     Indication: CARCINOID TUMOUR PULMONARY
     Dosage: 20 MG, UNK
     Route: 030
     Dates: end: 201610
  2. AFINITOR [Suspect]
     Active Substance: EVEROLIMUS
     Indication: CARCINOID TUMOUR PULMONARY
     Dosage: 10 MG, UNK
     Route: 048
     Dates: start: 201610, end: 201611
  3. SANDOSTATINA LAR IM INJECTION [Suspect]
     Active Substance: OCTREOTIDE ACETATE
     Dosage: 30 MG, UNK
     Route: 030
     Dates: start: 201611, end: 201702
  4. AFINITOR [Suspect]
     Active Substance: EVEROLIMUS
     Dosage: 5 MG, UNK
     Route: 048
     Dates: start: 201611, end: 201702

REACTIONS (4)
  - Carcinoid tumour pulmonary [Unknown]
  - Malignant neoplasm progression [Unknown]
  - Concomitant disease aggravated [Recovering/Resolving]
  - Carcinoid syndrome [Recovering/Resolving]

NARRATIVE: CASE EVENT DATE: 201609
